FAERS Safety Report 6178607-3 (Version None)
Quarter: 2009Q2

REPORT INFORMATION
  Report Type: 
  Country: None (occurrence: None)
  Receive Date: 20090430
  Receipt Date: 20090415
  Transmission Date: 20091009
  Serious: Yes (Other)
  Sender: FDA-Public Use
  Company Number: SPV1-2009-00696

PATIENT
  Age: 81 Year
  Sex: Female

DRUGS (3)
  1. 422 (ANAGRELIDE) (ANAGRELIDE HYDROCHLORIDE) [Suspect]
     Indication: ESSENTIAL THROMBOCYTHAEMIA
     Dosage: 0.64 MG MEAN DAILY DOSE, ORAL
     Route: 048
  2. HYDROXYUREA [Suspect]
     Indication: ESSENTIAL THROMBOCYTHAEMIA
     Dosage: 642 MG MEAN DAILY, 1000 MG MEAN DAILY DOSE
  3. PLATELET AGGREGATION INHIBITORS [Concomitant]

REACTIONS (1)
  - PULMONARY OEDEMA [None]
